FAERS Safety Report 4731310-6 (Version None)
Quarter: 2005Q3

REPORT INFORMATION
  Report Type: 
  Country: None (occurrence: None)
  Receive Date: 20050802
  Receipt Date: 20050720
  Transmission Date: 20060218
  Serious: Yes (Hospitalization)
  Sender: FDA-Public Use
  Company Number: US-AMGEN-US141134

PATIENT
  Sex: Male

DRUGS (3)
  1. NEUPOGEN [Suspect]
     Indication: NEUTROPENIA
     Route: 058
     Dates: start: 20050601
  2. INTERFERON [Concomitant]
  3. RIBAVIRIN [Concomitant]

REACTIONS (6)
  - ABSCESS [None]
  - HAEMATOMA [None]
  - INDURATION [None]
  - INFECTION [None]
  - INJECTION SITE HAEMORRHAGE [None]
  - INJECTION SITE PAIN [None]
